FAERS Safety Report 8310108-6 (Version None)
Quarter: 2012Q2

REPORT INFORMATION
  Report Type: 
  Country: None (occurrence: None)
  Receive Date: 20120425
  Receipt Date: 20120416
  Transmission Date: 20120825
  Serious: Yes (Other)
  Sender: FDA-Public Use
  Company Number: US-SANOFI-AVENTIS-2012SA026595

PATIENT
  Sex: Male

DRUGS (9)
  1. AMBIEN CR [Suspect]
  2. SIMVASTATIN [Concomitant]
  3. MULTI-VITAMINS [Concomitant]
  4. FISH OIL [Concomitant]
  5. ADDERALL 5 [Concomitant]
  6. AMBIEN CR [Suspect]
     Dates: start: 20110507, end: 20110507
  7. ASPIRIN [Concomitant]
  8. METFORMIN HCL [Concomitant]
  9. LISINOPRIL [Concomitant]

REACTIONS (4)
  - SOMNAMBULISM [None]
  - ROAD TRAFFIC ACCIDENT [None]
  - DRUG ABUSE [None]
  - AMNESIA [None]
